FAERS Safety Report 13074104 (Version 1)
Quarter: 2016Q4

REPORT INFORMATION
  Report Type: Spontaneous
  Country: US (occurrence: US)
  Receive Date: 20161229
  Receipt Date: 20161229
  Transmission Date: 20170207
  Serious: Yes (Other)
  Sender: FDA-Public Use
  Company Number: US-ASTRAZENECA-2016SF36237

PATIENT
  Age: 74 Year
  Sex: Female
  Weight: 73.9 kg

DRUGS (8)
  1. TYLENOL [Concomitant]
     Active Substance: ACETAMINOPHEN
     Indication: HEADACHE
     Dosage: TWO TABS EVERY 8 HOURS AS REQUIRED
     Route: 048
  2. SYMBICORT [Suspect]
     Active Substance: BUDESONIDE\FORMOTEROL FUMARATE DIHYDRATE
     Indication: ASTHMA
     Dosage: AS NEEDED
     Route: 055
  3. TYLENOL [Concomitant]
     Active Substance: ACETAMINOPHEN
     Indication: HEADACHE
     Dosage: EVERY 4 TO 6 HOURS AS REQUIRED
     Route: 048
  4. TAMOXIFEN [Suspect]
     Active Substance: TAMOXIFEN
     Indication: BREAST CANCER
     Route: 048
     Dates: start: 2008, end: 2013
  5. SYMBICORT [Suspect]
     Active Substance: BUDESONIDE\FORMOTEROL FUMARATE DIHYDRATE
     Indication: ASTHMA
     Dosage: 160/4.5 MCG 2 PUFFS TWICE DAILY
     Route: 055
  6. TAMOXIFEN [Suspect]
     Active Substance: TAMOXIFEN
     Indication: NEOPLASM MALIGNANT
     Route: 048
     Dates: start: 2008, end: 2013
  7. CANCER MEDICATION [Concomitant]
     Active Substance: UNSPECIFIED INGREDIENT
     Indication: BREAST CANCER
     Route: 065
     Dates: start: 2013
  8. ALBUTEROL NEBULIZER [Concomitant]
     Active Substance: ALBUTEROL
     Indication: ASTHMA
     Dosage: UNKNOWN
     Route: 065

REACTIONS (16)
  - Confusional state [Unknown]
  - Mental impairment [Unknown]
  - Device malfunction [Unknown]
  - Dyspnoea [Unknown]
  - Feeling abnormal [Unknown]
  - Abasia [Unknown]
  - Cough [Unknown]
  - Insomnia [Unknown]
  - Asthma [Unknown]
  - Breast cancer recurrent [Unknown]
  - Pulmonary congestion [Unknown]
  - Limb discomfort [Not Recovered/Not Resolved]
  - Off label use [Not Recovered/Not Resolved]
  - Arthritis [Unknown]
  - Breast cancer female [Unknown]
  - Product use issue [Unknown]

NARRATIVE: CASE EVENT DATE: 2008
